FAERS Safety Report 5952523-1 (Version None)
Quarter: 2008Q4

REPORT INFORMATION
  Report Type: 
  Country: None (occurrence: None)
  Receive Date: 20081113
  Receipt Date: 20081104
  Transmission Date: 20090506
  Serious: Yes (Life-Threatening)
  Sender: FDA-Public Use
  Company Number: JP-ABBOTT-08P-087-0486503-00

PATIENT
  Sex: Female

DRUGS (1)
  1. LEUPLIN FOR INJECTION 1.88 MG [Suspect]
     Indication: UTERINE LEIOMYOMA
     Route: 058
     Dates: start: 20081001, end: 20081001

REACTIONS (1)
  - SUICIDE ATTEMPT [None]
